FAERS Safety Report 6410447-X (Version None)
Quarter: 2009Q4

REPORT INFORMATION
  Report Type: 
  Country: None (occurrence: None)
  Receive Date: 20091022
  Receipt Date: 20091012
  Transmission Date: 20100525
  Serious: Yes (Other)
  Sender: FDA-Public Use
  Company Number: FR-WATSON-2009-08541

PATIENT
  Age: 3 Month
  Sex: Male

DRUGS (2)
  1. MICROZIDE [Suspect]
     Indication: NEPHROGENIC DIABETES INSIPIDUS
     Dosage: 2 MG/KG, DAILY X 2
  2. INDOMETHACIN [Suspect]
     Indication: NEPHROGENIC DIABETES INSIPIDUS
     Dosage: 2 MG/KG, DAILY X 2

REACTIONS (7)
  - FLUID RETENTION [None]
  - HYPONATRAEMIA [None]
  - OEDEMA [None]
  - SOMNOLENCE [None]
  - STATUS EPILEPTICUS [None]
  - WATER INTOXICATION [None]
  - WEIGHT INCREASED [None]
